FAERS Safety Report 5192177-8 (Version None)
Quarter: 2006Q4

REPORT INFORMATION
  Report Type: 
  Country: None (occurrence: None)
  Receive Date: 20061220
  Receipt Date: 20061207
  Transmission Date: 20070319
  Serious: Yes (Death, Hospitalization)
  Sender: FDA-Public Use
  Company Number: HQWYE946120NOV06

PATIENT
  Age: 62 Year
  Sex: Male

DRUGS (6)
  1. EUPANTOL (PANTOPRAZOLE, INJECTION) [Suspect]
     Dosage: 40 MG 1X PER 1 DAY; INTRAVENOUS; 40 MG 1X PER 1 DAY' INTRAVENOUS
     Route: 042
     Dates: start: 20060701, end: 20060701
  2. EUPANTOL (PANTOPRAZOLE, INJECTION) [Suspect]
     Dosage: 40 MG 1X PER 1 DAY; INTRAVENOUS; 40 MG 1X PER 1 DAY' INTRAVENOUS
     Route: 042
     Dates: start: 20060703, end: 20060703
  3. RANITIDINE HYDROCHLORIDE [Suspect]
     Dosage: 400 MG 1X PER 1 DAY; INTRAVENOUS
     Route: 042
     Dates: start: 20060705
  4. LOVENOX [Suspect]
     Dosage: ^4 ML^, SC
     Route: 058
     Dates: start: 20060630, end: 20060630
  5. PERFALGAN (PARACETAMOL, ) [Suspect]
     Dosage: 1 G 4X PER 1 DAY; INTRAVENOUS
     Route: 042
     Dates: start: 20060629, end: 20060630
  6. SOLU-MEDROL [Suspect]
     Dosage: 120 MG 1X PER 1 DAY; INTRAVENOUS
     Route: 042
     Dates: start: 20060628, end: 20060702

REACTIONS (12)
  - BLOOD CREATININE INCREASED [None]
  - BLOOD UREA INCREASED [None]
  - CONDITION AGGRAVATED [None]
  - GASTRIC ULCER [None]
  - HAEMOGLOBIN DECREASED [None]
  - HYDRONEPHROSIS [None]
  - INTESTINAL DILATATION [None]
  - METASTASES TO PERITONEUM [None]
  - METASTATIC NEOPLASM [None]
  - NEPHROLITHIASIS [None]
  - THROMBOCYTOPENIA [None]
  - THROMBOSIS [None]
